FAERS Safety Report 23078179 (Version 1)
Quarter: 2023Q4

REPORT INFORMATION
  Report Type: Spontaneous
  Country: DE (occurrence: DE)
  Receive Date: 20231018
  Receipt Date: 20231018
  Transmission Date: 20240110
  Serious: Yes (Other)
  Sender: FDA-Public Use
  Company Number: None

PATIENT
  Age: 30 Year
  Sex: Male

DRUGS (1)
  1. METAMIZOL [Suspect]
     Active Substance: METAMIZOLE SODIUM
     Indication: Herpes zoster
     Dosage: 3X 750 MG DAILY
     Route: 048
     Dates: end: 20230921

REACTIONS (5)
  - Agranulocytosis [Unknown]
  - Oropharyngeal pain [Unknown]
  - Pain in extremity [Unknown]
  - Somnolence [Unknown]
  - Body temperature increased [Unknown]

NARRATIVE: CASE EVENT DATE: 20230919
